FAERS Safety Report 8775067 (Version 2)
Quarter: 2012Q4

REPORT INFORMATION
  Report Type: 
  Country: US (occurrence: US)
  Receive Date: 20120910
  Receipt Date: 20121008
  Transmission Date: 20130627
  Serious: Yes (Disabling)
  Sender: FDA-Public Use
  Company Number: US-CELGENEUS-163-21880-12090114

PATIENT
  Age: 68 Year
  Sex: Female

DRUGS (8)
  1. REVLIMID [Suspect]
     Indication: MULTIPLE MYELOMA
     Dosage: 25 Milligram
     Route: 048
     Dates: start: 20120511, end: 20120802
  2. REVLIMID [Suspect]
     Dosage: 15 Milligram
     Route: 048
     Dates: start: 20120802
  3. DILAUDID [Suspect]
     Indication: PAIN
     Dosage: 4 Milligram
     Route: 065
     Dates: start: 20120507
  4. IMODIUM AD [Suspect]
     Indication: DIARRHEA
     Route: 065
     Dates: start: 20120516
  5. IRON [Suspect]
     Indication: ANEMIA
     Dosage: 650 Milligram
     Route: 065
     Dates: start: 20120516
  6. PROAIR [Suspect]
     Indication: DRUG USE FOR UNKNOWN INDICATION
     Route: 065
     Dates: start: 20101118
  7. TOPROL XL [Suspect]
     Indication: HYPERTENSION
     Dosage: 100 Milligram
     Route: 065
     Dates: start: 20100728
  8. LIDODERM [Suspect]
     Indication: PAIN
     Route: 065
     Dates: start: 20120802

REACTIONS (3)
  - Skin discolouration [Unknown]
  - Oedema peripheral [Unknown]
  - Pain in extremity [Unknown]
